FAERS Safety Report 22271638 (Version 2)
Quarter: 2023Q2

REPORT INFORMATION
  Report Type: Report from Study
  Country: IT (occurrence: IT)
  Receive Date: 20230502
  Receipt Date: 20230524
  Transmission Date: 20230722
  Serious: Yes (Hospitalization)
  Sender: FDA-Public Use
  Company Number: None

PATIENT

DRUGS (2)
  1. DICLOFENAC SODIUM [Suspect]
     Active Substance: DICLOFENAC SODIUM
     Indication: Back pain
     Dosage: UNK (FREQUENCY OF ADMINISTRATION: TOTAL ROUTE OF ADMINISTRATION: ORAL
     Route: 048
     Dates: start: 20230208, end: 20230208
  2. LEVACECARNINE HYDROCHLORIDE [Suspect]
     Active Substance: LEVACECARNINE HYDROCHLORIDE
     Indication: Back pain
     Dosage: UNK (FREQUENCY OF ADMINISTRATION: DAILY ROUTE OF ADMINISTRATION: ORAL)
     Route: 048
     Dates: start: 20230208, end: 20230208

REACTIONS (2)
  - Rash [Recovering/Resolving]
  - Pruritus [Recovering/Resolving]

NARRATIVE: CASE EVENT DATE: 20230208
